FAERS Safety Report 14247202 (Version 3)
Quarter: 2018Q1

REPORT INFORMATION
  Report Type: Report from Study
  Country: JP (occurrence: JP)
  Receive Date: 20171204
  Receipt Date: 20180315
  Transmission Date: 20180508
  Serious: Yes (Hospitalization, Other)
  Sender: FDA-Public Use
  Company Number: JP-BRISTOL-MYERS SQUIBB COMPANY-BMS-2016-106420

PATIENT
  Age: 64 Year
  Sex: Male

DRUGS (1)
  1. NIVOLUMAB [Suspect]
     Active Substance: NIVOLUMAB
     Indication: NON-SMALL CELL LUNG CANCER RECURRENT
     Dosage: 3 MG/KG, UNK
     Route: 041
     Dates: start: 20160203, end: 20160914

REACTIONS (5)
  - Malignant neoplasm progression [Unknown]
  - Proteinuria [Recovering/Resolving]
  - Type 2 diabetes mellitus [Recovering/Resolving]
  - Vascular graft [Unknown]
  - Peripheral embolism [Recovered/Resolved]

NARRATIVE: CASE EVENT DATE: 20160928
